FAERS Safety Report 5134559-6 (Version None)
Quarter: 2006Q4

REPORT INFORMATION
  Report Type: 
  Country: None (occurrence: None)
  Receive Date: 20061019
  Receipt Date: 20061004
  Transmission Date: 20070319
  Serious: Yes (Hospitalization)
  Sender: FDA-Public Use
  Company Number: ALK_0032_2006

PATIENT
  Age: 25 Year
  Sex: Female

DRUGS (1)
  1. VIVITROL [Suspect]
     Indication: ALCOHOLISM
     Dosage: 380 MG QM IM
     Route: 030
     Dates: start: 20060809

REACTIONS (2)
  - BIPOLAR I DISORDER [None]
  - OVERDOSE [None]
